FAERS Safety Report 18396905 (Version 1)
Quarter: 2020Q4

REPORT INFORMATION
  Report Type: Spontaneous
  Country: US (occurrence: US)
  Receive Date: 20201016
  Receipt Date: 20201016
  Transmission Date: 20210114
  Serious: Yes (Other)
  Sender: FDA-Public Use
  Company Number: None

PATIENT
  Age: 36 Year
  Sex: Male
  Weight: 169 kg

DRUGS (1)
  1. REMDESIVIR. [Suspect]
     Active Substance: REMDESIVIR
     Route: 040
     Dates: start: 20201011, end: 20201015

REACTIONS (2)
  - Therapy cessation [None]
  - Alanine aminotransferase increased [None]

NARRATIVE: CASE EVENT DATE: 20201015
